FAERS Safety Report 21558873 (Version 1)
Quarter: 2022Q4

REPORT INFORMATION
  Report Type: Spontaneous
  Country: US (occurrence: None)
  Receive Date: 20221103
  Receipt Date: 20221103
  Transmission Date: 20230113
  Serious: Yes (Hospitalization)
  Sender: FDA-Public Use
  Company Number: None

PATIENT
  Sex: Female

DRUGS (1)
  1. COSENTYX [Suspect]
     Active Substance: SECUKINUMAB
     Route: 058

REACTIONS (6)
  - Diarrhoea [None]
  - Injection site induration [None]
  - Discomfort [None]
  - Diverticulitis [None]
  - Gastroenteritis [None]
  - Gastritis [None]
